FAERS Safety Report 4615828-2 (Version None)
Quarter: 2005Q1

REPORT INFORMATION
  Report Type: 
  Country: None (occurrence: None)
  Receive Date: 20050321
  Receipt Date: 20050310
  Transmission Date: 20050727
  Serious: Yes (Hospitalization)
  Sender: FDA-Public Use
  Company Number: GXKR2005US00727

PATIENT
  Age: 54 Year
  Sex: Male

DRUGS (8)
  1. METFORMIN (NGX) (METFORMIN) [Suspect]
     Indication: DIABETES MELLITUS
     Dosage: 850 MG, TID
     Dates: start: 19850101
  2. TROGLITAZONE (TROGLITAZONE) [Suspect]
     Indication: DIABETES MELLITUS
     Dosage: 600 MG, QD
     Dates: start: 19981001
  3. GLIPIZIDE [Concomitant]
  4. SIMVASTATIN [Concomitant]
  5. LOPID [Concomitant]
  6. LASIX [Concomitant]
  7. METOPROLOL TARTRATE [Concomitant]
  8. ACETYLSALICYLIC ACID SRT [Concomitant]

REACTIONS (16)
  - ABDOMINAL PAIN [None]
  - ABDOMINAL PAIN LOWER [None]
  - ASCITES [None]
  - ATRIAL FIBRILLATION [None]
  - ATRIAL THROMBOSIS [None]
  - CHOLELITHIASIS [None]
  - DIARRHOEA [None]
  - DYSPNOEA [None]
  - HAEMODIALYSIS [None]
  - HEPATIC FAILURE [None]
  - HEPATOTOXICITY [None]
  - HYPOTENSION [None]
  - LACTIC ACIDOSIS [None]
  - NEPHROLITHIASIS [None]
  - PALPITATIONS [None]
  - RENAL FAILURE [None]
